FAERS Safety Report 6342757-9 (Version None)
Quarter: 2009Q3

REPORT INFORMATION
  Report Type: 
  Country: None (occurrence: None)
  Receive Date: 20090908
  Receipt Date: 20000107
  Transmission Date: 20100115
  Serious: No
  Sender: FDA-Public Use
  Company Number: US-ROCHE-98870

PATIENT
  Sex: Male
  Weight: 3.6 kg

DRUGS (1)
  1. GS4104 [Suspect]
     Indication: INFLUENZA
     Dates: start: 19980304, end: 19980308

REACTIONS (2)
  - CAESAREAN SECTION [None]
  - PATERNAL DRUGS AFFECTING FOETUS [None]
